FAERS Safety Report 16828205 (Version 2)
Quarter: 2020Q1

REPORT INFORMATION
  Report Type: Spontaneous
  Country: PL (occurrence: PL)
  Receive Date: 20190919
  Receipt Date: 20200217
  Transmission Date: 20200409
  Serious: Yes (Other)
  Sender: FDA-Public Use
  Company Number: PHHY2019PL147882

PATIENT
  Age: 32 Year
  Sex: Female

DRUGS (4)
  1. ENOXAPARIN SODIUM. [Suspect]
     Active Substance: ENOXAPARIN SODIUM
     Indication: ARTERIAL THROMBOSIS
     Dosage: 2 MG/KG, QD
     Route: 058
  2. ACETYLSALICYLIC ACID [Suspect]
     Active Substance: ASPIRIN
     Indication: ARTERIAL THROMBOSIS
  3. ENOXAPARIN SODIUM. [Suspect]
     Active Substance: ENOXAPARIN SODIUM
     Indication: ARTERY DISSECTION
     Dosage: 1 MG/ KG OF BODY WEIGHT TWICE/24 HOURS
     Route: 058
  4. ACETYLSALICYLIC ACID [Suspect]
     Active Substance: ASPIRIN
     Indication: ARTERY DISSECTION
     Dosage: 150 MG, QD
     Route: 065

REACTIONS (5)
  - Rash [Unknown]
  - Methylenetetrahydrofolate reductase gene mutation [Unknown]
  - Hypersensitivity [Unknown]
  - Type IV hypersensitivity reaction [Unknown]
  - Marfan^s syndrome [Unknown]
